FAERS Safety Report 24149211 (Version 1)
Quarter: 2024Q3

REPORT INFORMATION
  Report Type: Spontaneous
  Country: US (occurrence: US)
  Receive Date: 20240729
  Receipt Date: 20240729
  Transmission Date: 20241016
  Serious: No
  Sender: BLUEPRINT MEDICINES
  Company Number: US-Blueprint Medicines Corporation-4294

PATIENT
  Sex: Female

DRUGS (2)
  1. AYVAKIT [Suspect]
     Active Substance: AVAPRITINIB
     Indication: Systemic mastocytosis
     Route: 048
  2. MINERALS\POTASSIUM IODIDE\VITAMINS [Suspect]
     Active Substance: MINERALS\POTASSIUM IODIDE\VITAMINS
     Indication: Product used for unknown indication
     Route: 065

REACTIONS (3)
  - Eczema [Unknown]
  - Pain in extremity [Unknown]
  - Rash macular [Unknown]
